FAERS Safety Report 4750456-X (Version None)
Quarter: 2005Q3

REPORT INFORMATION
  Report Type: 
  Country: None (occurrence: None)
  Receive Date: 20050823
  Receipt Date: 20050817
  Transmission Date: 20060218
  Serious: Yes (Other)
  Sender: FDA-Public Use
  Company Number: JPKYO-S-20050020

PATIENT
  Age: 39 Year
  Sex: Female

DRUGS (2)
  1. NAVELBINE [Suspect]
     Indication: BREAST CANCER
     Route: 042
     Dates: start: 20050622
  2. PHYSIOLOGICAL SALINE [Concomitant]

REACTIONS (4)
  - DIFFICULTY IN WALKING [None]
  - INJECTION SITE PHLEBITIS [None]
  - INJECTION SITE REACTION [None]
  - OEDEMA [None]
